FAERS Safety Report 5733980-2 (Version None)
Quarter: 2008Q2

REPORT INFORMATION
  Report Type: 
  Country: None (occurrence: None)
  Receive Date: 20080509
  Receipt Date: 20080414
  Transmission Date: 20081010
  Serious: No
  Sender: FDA-Public Use
  Company Number: US-BOEHRINGER INGELHEIM GMBH, GERMANY-2008-BP-05817BP

PATIENT
  Sex: Male

DRUGS (4)
  1. SPIRIVA [Suspect]
     Indication: CHRONIC OBSTRUCTIVE PULMONARY DISEASE
     Route: 055
     Dates: start: 20071228
  2. LASIX [Concomitant]
     Route: 048
  3. POTASSIUM CHLORIDE [Concomitant]
  4. FOLIC ACID [Concomitant]

REACTIONS (12)
  - ANOREXIA [None]
  - CONFUSIONAL STATE [None]
  - DRY MOUTH [None]
  - DYSGEUSIA [None]
  - DYSURIA [None]
  - MYALGIA [None]
  - PROSTATIC SPECIFIC ANTIGEN INCREASED [None]
  - PROTEIN TOTAL DECREASED [None]
  - RASH [None]
  - RHINORRHOEA [None]
  - WEIGHT DECREASED [None]
  - WHITE BLOOD CELL COUNT INCREASED [None]
